FAERS Safety Report 8657495 (Version 5)
Quarter: 2013Q2

REPORT INFORMATION
  Report Type: Report from Study
  Country: US (occurrence: US)
  Receive Date: 20120710
  Receipt Date: 20130625
  Transmission Date: 20140414
  Serious: Yes (Life-Threatening)
  Sender: FDA-Public Use
  Company Number: PHHO2012US009930

PATIENT
  Age: 69 Year
  Sex: Male
  Weight: 104.31 kg

DRUGS (7)
  1. ACZ885 [Suspect]
     Indication: GOUTY ARTHRITIS
     Dosage: 150 MG, UNK
     Route: 058
  2. ALLOPURINOL [Concomitant]
     Indication: GOUT
     Dosage: 300 MG, QD
     Dates: start: 20100622
  3. LOSARTAN HYDROCHLOROTHIAZIDE [Concomitant]
     Indication: HYPERTENSION
     Dosage: 125 MG, QD
  4. COLCHICINE [Concomitant]
     Indication: GOUT
     Dosage: 0.6 MG, QD
     Dates: start: 20100622
  5. RISPERDAL [Concomitant]
     Indication: BIPOLAR DISORDER
     Dosage: 1 MG, QD
  6. REMERON [Concomitant]
     Indication: BIPOLAR DISORDER
     Dosage: 15 MG, QD
  7. DEPAKOTE [Concomitant]
     Indication: BIPOLAR DISORDER
     Dosage: 500 MG, QD

REACTIONS (1)
  - Transitional cell carcinoma [Not Recovered/Not Resolved]
